FAERS Safety Report 9401584 (Version 2)
Quarter: 2013Q3

REPORT INFORMATION
  Report Type: Spontaneous
  Country: JP (occurrence: JP)
  Receive Date: 20130716
  Receipt Date: 20130731
  Transmission Date: 20140515
  Serious: Yes (Other)
  Sender: FDA-Public Use
  Company Number: JP-BRISTOL-MYERS SQUIBB COMPANY-19103910

PATIENT
  Age: 62 Year
  Sex: Male

DRUGS (5)
  1. ABILIFY TABS [Suspect]
     Indication: BIPOLAR DISORDER
     Route: 065
     Dates: start: 20130531, end: 20130601
  2. CERCINE [Concomitant]
     Dosage: POWDER
     Route: 048
     Dates: start: 20130212
  3. SYMMETREL [Concomitant]
     Dates: start: 20130212
  4. BROTIZOLAM [Concomitant]
     Dosage: TABS
     Dates: start: 20130212
  5. DEPAKENE [Concomitant]
     Dates: start: 20130523

REACTIONS (2)
  - Ileus paralytic [Recovered/Resolved]
  - Vomiting [Recovered/Resolved]
